FAERS Safety Report 24990294 (Version 2)
Quarter: 2025Q1

REPORT INFORMATION
  Report Type: Spontaneous
  Country: IT (occurrence: IT)
  Receive Date: 20250220
  Receipt Date: 20250225
  Transmission Date: 20250409
  Serious: Yes (Other)
  Sender: RANBAXY
  Company Number: IT-SUN PHARMACEUTICAL INDUSTRIES LTD-2025RR-496042

PATIENT
  Age: 66 Year
  Sex: Male

DRUGS (1)
  1. ESOMEPRAZOLE [Suspect]
     Active Substance: ESOMEPRAZOLE
     Indication: Erosive oesophagitis
     Dosage: 40 MILLIGRAM, BID
     Route: 048
     Dates: start: 20130101, end: 20210708

REACTIONS (3)
  - Erosive oesophagitis [Unknown]
  - Therapy non-responder [Unknown]
  - Oesophageal ulcer [Unknown]
